FAERS Safety Report 22380935 (Version 1)
Quarter: 2023Q2

REPORT INFORMATION
  Report Type: Spontaneous
  Country: CN (occurrence: CN)
  Receive Date: 20230530
  Receipt Date: 20230530
  Transmission Date: 20230722
  Serious: Yes (Other)
  Sender: FDA-Public Use
  Company Number: CN-009507513-2305CHN007925

PATIENT
  Age: 26 Year
  Sex: Female

DRUGS (4)
  1. CANCIDAS [Suspect]
     Active Substance: CASPOFUNGIN ACETATE
     Indication: Anti-infective therapy
     Dosage: 50 MILLIGRAM, QD
     Route: 041
     Dates: start: 20230504, end: 20230511
  2. SULFAMETHOXAZOLE [Suspect]
     Active Substance: SULFAMETHOXAZOLE
     Indication: Anti-infective therapy
     Dosage: 0.48 GRAM, Q8H
     Route: 048
     Dates: start: 20230428, end: 20230511
  3. GANCICLOVIR [Suspect]
     Active Substance: GANCICLOVIR
     Indication: Anti-infective therapy
     Dosage: 125 MILLIGRAM, QD
     Route: 041
     Dates: start: 20230428, end: 20230511
  4. AVELOX [Concomitant]
     Active Substance: MOXIFLOXACIN HYDROCHLORIDE
     Indication: Anti-infective therapy
     Dosage: 0.4 GRAM, QD
     Route: 041
     Dates: start: 20230428, end: 20230511

REACTIONS (1)
  - Myelosuppression [Unknown]

NARRATIVE: CASE EVENT DATE: 20230507
